FAERS Safety Report 5122418-4 (Version None)
Quarter: 2006Q4

REPORT INFORMATION
  Report Type: 
  Country: None (occurrence: None)
  Receive Date: 20061004
  Receipt Date: 20061002
  Transmission Date: 20070319
  Serious: Yes (Other)
  Sender: FDA-Public Use
  Company Number: HQWYE552723JAN04

PATIENT
  Age: 61 Year
  Sex: Female

DRUGS (1)
  1. PREMPRO [Suspect]

REACTIONS (6)
  - BREAST CANCER METASTATIC [None]
  - GRANULOMA [None]
  - HEPATIC LESION [None]
  - OESTROGEN RECEPTOR ASSAY POSITIVE [None]
  - PROGESTERONE RECEPTOR ASSAY POSITIVE [None]
  - SPLEEN DISORDER [None]
